FAERS Safety Report 7833226-5 (Version None)
Quarter: 2011Q4

REPORT INFORMATION
  Report Type: 
  Country: None (occurrence: None)
  Receive Date: 20111024
  Receipt Date: 20111020
  Transmission Date: 20120403
  Serious: Yes (Other)
  Sender: FDA-Public Use
  Company Number: US-PFIZER INC-2011254657

PATIENT
  Sex: Female
  Weight: 48.98 kg

DRUGS (4)
  1. CELEBREX [Suspect]
     Indication: PROCEDURAL PAIN
     Dosage: 200 MG, TWO TO THREE TIMES DAILY
     Dates: start: 20100101
  2. CELEBREX [Suspect]
     Dosage: 300 MG, TWO TO THREE TIMES DAILY
  3. MECLIZINE HCL [Suspect]
     Indication: VERTIGO
     Dosage: 50 MG, 3X/DAY
     Dates: start: 20110801, end: 20110101
  4. XANAX [Concomitant]
     Indication: ANXIETY
     Dosage: 2 MG, 3X/DAY

REACTIONS (2)
  - AMNESIA [None]
  - MENIERE'S DISEASE [None]
